FAERS Safety Report 10911531 (Version 2)
Quarter: 2015Q1

REPORT INFORMATION
  Report Type: Spontaneous
  Country: GB (occurrence: GB)
  Receive Date: 20150313
  Receipt Date: 20150316
  Transmission Date: 20150721
  Serious: Yes (Other)
  Sender: FDA-Public Use
  Company Number: GB-AMGEN-GBRSP2015022850

PATIENT
  Age: 43 Year
  Sex: Female

DRUGS (1)
  1. ENBREL [Suspect]
     Active Substance: ETANERCEPT
     Indication: PRODUCT USED FOR UNKNOWN INDICATION
     Dosage: UNK
     Route: 065

REACTIONS (7)
  - Hypersomnia [Unknown]
  - Dyspnoea [Unknown]
  - Lower respiratory tract infection [Unknown]
  - Body temperature increased [Unknown]
  - Depressed mood [Unknown]
  - Malaise [Unknown]
  - Painful respiration [Unknown]
